FAERS Safety Report 9917157 (Version 2)
Quarter: 2014Q2

REPORT INFORMATION
  Report Type: Spontaneous
  Country: MX (occurrence: MX)
  Receive Date: 20140221
  Receipt Date: 20140529
  Transmission Date: 20141212
  Serious: Yes (Hospitalization, Other)
  Sender: FDA-Public Use
  Company Number: MX-ELI_LILLY_AND_COMPANY-MX201402005197

PATIENT
  Sex: Female

DRUGS (2)
  1. HUMALOG 25% LISPRO, 75% NPL [Suspect]
     Indication: GESTATIONAL DIABETES
     Dosage: 30 DF, EACH MORNING
     Route: 065
     Dates: start: 20140123, end: 20140213
  2. HUMALOG 25% LISPRO, 75% NPL [Suspect]
     Dosage: 15 DF, EACH EVENING
     Route: 065
     Dates: start: 20140123, end: 20140213

REACTIONS (2)
  - Abortion spontaneous [Recovered/Resolved]
  - Maternal exposure during pregnancy [Recovered/Resolved]
